FAERS Safety Report 24969616 (Version 1)
Quarter: 2025Q1

REPORT INFORMATION
  Report Type: Spontaneous
  Country: US (occurrence: None)
  Receive Date: 20250213
  Receipt Date: 20250213
  Transmission Date: 20250408
  Serious: Yes (Hospitalization)
  Sender: FDA-CTU
  Company Number: None

PATIENT
  Sex: Female

DRUGS (2)
  1. ENTECAVIR [Suspect]
     Active Substance: ENTECAVIR
     Route: 048
     Dates: start: 202302
  2. OFEV [Suspect]
     Active Substance: NINTEDANIB
     Dosage: FREQUENCY : DAILY;?
     Route: 048
     Dates: start: 202302

REACTIONS (1)
  - Oxygen saturation decreased [None]
